FAERS Safety Report 9708352 (Version 1)
Quarter: 2013Q4

REPORT INFORMATION
  Report Type: Spontaneous
  Country: US (occurrence: US)
  Receive Date: 20131125
  Receipt Date: 20131125
  Transmission Date: 20140711
  Serious: Yes (Hospitalization, Other)
  Sender: FDA-Public Use
  Company Number: US-PFIZER INC-2013330287

PATIENT
  Age: 46 Year
  Sex: Male

DRUGS (8)
  1. ZOLOFT [Suspect]
     Indication: DEPRESSION
     Dosage: 50 MG, 1X/DAY
  2. DILTIAZEM HCL [Suspect]
     Dosage: 240 MG, 1X/DAY
     Route: 048
  3. MEPRON [Suspect]
     Indication: GRANULOMATOSIS WITH POLYANGIITIS
     Dosage: 1500 MG, 1X/DAY (2 TEASPOONS A DAY ,750 MG/1 TSP)
     Route: 048
     Dates: start: 201105
  4. RITUXAN [Suspect]
     Indication: GRANULOMATOSIS WITH POLYANGIITIS
     Dosage: 10 MG/ML, CYCLIC (EVERY 6 MONTHS)
     Route: 042
  5. ZOCOR [Suspect]
     Indication: BLOOD CHOLESTEROL INCREASED
     Dosage: UNK
     Dates: end: 201012
  6. ZOCOR [Suspect]
     Dosage: UNK
     Dates: start: 201105
  7. VENOFER [Concomitant]
     Dosage: UNK
  8. ASPIRIN [Concomitant]
     Dosage: 81 MG, UNK

REACTIONS (9)
  - Vomiting [Recovering/Resolving]
  - Diarrhoea [Recovering/Resolving]
  - Arthralgia [Recovering/Resolving]
  - Fatigue [Recovering/Resolving]
  - Abdominal discomfort [Recovering/Resolving]
  - Therapeutic response unexpected [Recovering/Resolving]
  - Disability [Recovering/Resolving]
  - Convulsion [Recovered/Resolved]
  - Mental disorder [Recovering/Resolving]
